FAERS Safety Report 7934166-3 (Version None)
Quarter: 2011Q4

REPORT INFORMATION
  Report Type: 
  Country: None (occurrence: None)
  Receive Date: 20111122
  Receipt Date: 20111116
  Transmission Date: 20120403
  Serious: Yes (Other)
  Sender: FDA-Public Use
  Company Number: DE-BAXTER-2011BH036616

PATIENT
  Age: 74 Year
  Sex: Male
  Weight: 70 kg

DRUGS (2)
  1. CYCLOPHOSPHAMIDE [Suspect]
     Indication: WEGENER'S GRANULOMATOSIS
     Route: 042
     Dates: start: 20111031
  2. CYCLOPHOSPHAMIDE [Suspect]
     Route: 042
     Dates: start: 20110101

REACTIONS (3)
  - PYREXIA [None]
  - MALAISE [None]
  - HEPATIC FUNCTION ABNORMAL [None]
